FAERS Safety Report 12789576 (Version 2)
Quarter: 2017Q1

REPORT INFORMATION
  Report Type: Other
  Country: US (occurrence: US)
  Receive Date: 20160928
  Receipt Date: 20170302
  Transmission Date: 20170428
  Serious: Yes (Other)
  Sender: FDA-Public Use
  Company Number: US-ACORDA-ACO_128414_2016

PATIENT
  Sex: Male
  Weight: 53.06 kg

DRUGS (1)
  1. AMPYRA [Suspect]
     Active Substance: DALFAMPRIDINE
     Indication: MULTIPLE SCLEROSIS
     Dosage: UNK
     Route: 065
     Dates: end: 2014

REACTIONS (3)
  - Condition aggravated [Not Recovered/Not Resolved]
  - Wheelchair user [Not Recovered/Not Resolved]
  - Abasia [Not Recovered/Not Resolved]
